FAERS Safety Report 5097166-X (Version None)
Quarter: 2006Q3

REPORT INFORMATION
  Report Type: 
  Country: None (occurrence: None)
  Receive Date: 20060828
  Receipt Date: 20060816
  Transmission Date: 20061208
  Serious: Yes (Death, Hospitalization)
  Sender: FDA-Public Use
  Company Number: B0435377A

PATIENT
  Age: 77 Year
  Sex: Male

DRUGS (7)
  1. PAXIL [Suspect]
     Dosage: WEEKS
  2. CLOZAPINE [Suspect]
     Dosage: WEEKS
  3. FLUID THERAPY-UNSPECIFIED [Concomitant]
  4. INSULIN [Concomitant]
  5. ANTIBIOTICS [Concomitant]
  6. APOMORPHINE [Concomitant]
  7. DOMPERIDONE [Concomitant]

REACTIONS (21)
  - AGITATION [None]
  - BLOOD PH INCREASED [None]
  - BLOOD PRESSURE DIASTOLIC DECREASED [None]
  - CARDIO-RESPIRATORY ARREST [None]
  - CEREBRAL ATROPHY [None]
  - COAGULOPATHY [None]
  - CONFUSIONAL STATE [None]
  - DEPRESSED LEVEL OF CONSCIOUSNESS [None]
  - DISSEMINATED INTRAVASCULAR COAGULATION [None]
  - HEART RATE INCREASED [None]
  - HYPERGLYCAEMIA [None]
  - INCOHERENT [None]
  - METABOLIC ACIDOSIS [None]
  - MUTISM [None]
  - NEUROLEPTIC MALIGNANT SYNDROME [None]
  - PLATELET COUNT DECREASED [None]
  - PNEUMONIA ASPIRATION [None]
  - PYREXIA [None]
  - RENAL FAILURE [None]
  - RESPIRATORY FAILURE [None]
  - TACHYPNOEA [None]
